FAERS Safety Report 18132675 (Version 2)
Quarter: 2021Q4

REPORT INFORMATION
  Report Type: Spontaneous
  Country: US (occurrence: US)
  Receive Date: 20200811
  Receipt Date: 20211103
  Transmission Date: 20220304
  Serious: Yes (Other)
  Sender: FDA-Public Use
  Company Number: US-SAARTEMIS-SAC202008070409

PATIENT
  Age: 98 Year
  Sex: Male

DRUGS (1)
  1. ZANTAC [Suspect]
     Active Substance: RANITIDINE HYDROCHLORIDE
     Indication: Dyspepsia
     Dosage: UNK, QD
     Dates: start: 199001, end: 201909

REACTIONS (2)
  - Oesophageal carcinoma [Unknown]
  - Tongue carcinoma stage III [Unknown]

NARRATIVE: CASE EVENT DATE: 20200301
